FAERS Safety Report 12496415 (Version 2)
Quarter: 2016Q4

REPORT INFORMATION
  Report Type: Spontaneous
  Country: US (occurrence: US)
  Receive Date: 20160624
  Receipt Date: 20161017
  Transmission Date: 20170207
  Serious: No
  Sender: FDA-Public Use
  Company Number: US-GLAXOSMITHKLINE-US2016GSK087900

PATIENT
  Sex: Female

DRUGS (4)
  1. LAMISIL [Suspect]
     Active Substance: TERBINAFINE HYDROCHLORIDE
     Indication: ONYCHOMYCOSIS
     Dosage: UNK UNK, QD
     Route: 048
  2. TERBINAFINE TABLET [Suspect]
     Active Substance: TERBINAFINE
     Indication: ONYCHOMYCOSIS
     Dosage: UNK UNK, QD
     Route: 048
  3. FISH OIL [Concomitant]
     Active Substance: FISH OIL
  4. ERGOCALCIFEROL (VITAMIN D) [Concomitant]

REACTIONS (5)
  - Sluggishness [Unknown]
  - Dyspepsia [Unknown]
  - Decreased appetite [Unknown]
  - Lethargy [Unknown]
  - Dysgeusia [Unknown]
